FAERS Safety Report 6021957 (Version 7)
Quarter: 2012Q4

REPORT INFORMATION
  Report Type: 
  Country: CA (occurrence: CA)
  Receive Date: 20060410
  Receipt Date: 20121107
  Transmission Date: 20130627
  Serious: Yes (Other)
  Sender: FDA-Public Use
  Company Number: PHHO2005CA02681

PATIENT
  Sex: Female

DRUGS (17)
  1. SANDOSTATIN LAR (PATIENT BASIS) [Suspect]
     Indication: NEUROENDOCRINE TUMOUR
     Dosage: 30mg, every 2 weeks
  2. SANDOSTATIN LAR (PATIENT BASIS) [Suspect]
     Dosage: 20 mg, every 2 weeks
     Dates: start: 20041217
  3. SANDOSTATIN (OCTREOTIDE ACETATE) [Suspect]
     Route: 058
  4. CELEXA [Concomitant]
  5. WELLBUTRIN [Concomitant]
  6. SENNOSIDE [Concomitant]
  7. HYDROMORPHONE [Concomitant]
  8. DILAUDID [Concomitant]
  9. NOVO-DOCUSATE [Concomitant]
  10. NOVO-TEMAZEPAM [Concomitant]
  11. KYTRIL [Concomitant]
  12. RESTORIL [Concomitant]
  13. COLACE [Concomitant]
  14. DURAGESIC [Concomitant]
     Dosage: 50 mg, UNK
  15. DURAGESIC [Concomitant]
     Dosage: 100 mg, UNK
  16. FENTANYL [Concomitant]
     Dosage: 75 mg, UNK
  17. NEUROTIN [Concomitant]
     Dosage: 5 mg, UNK

REACTIONS (41)
  - Obstruction [Unknown]
  - Diarrhoea [Unknown]
  - Decreased appetite [Unknown]
  - Gastrointestinal pain [Unknown]
  - Gastritis [Recovering/Resolving]
  - Loss of consciousness [Unknown]
  - Dyspnoea [Unknown]
  - Oedema peripheral [Unknown]
  - Cyanosis [Unknown]
  - Pain [Unknown]
  - Migraine [Unknown]
  - Hypotension [Unknown]
  - Blood pressure decreased [Unknown]
  - Convulsion [Unknown]
  - Muscle spasms [Unknown]
  - Blindness [Unknown]
  - Injection site extravasation [Unknown]
  - Hot flush [Unknown]
  - Hyperhidrosis [Unknown]
  - Vertigo [Unknown]
  - Dysmenorrhoea [Unknown]
  - Insomnia [Unknown]
  - Weight increased [Unknown]
  - Weight decreased [Unknown]
  - Peripheral coldness [Unknown]
  - Scleral discolouration [Unknown]
  - Blister [Unknown]
  - Increased upper airway secretion [Unknown]
  - Hallucination [Unknown]
  - Oedema [Unknown]
  - Asthenia [Not Recovered/Not Resolved]
  - Fatigue [Unknown]
  - Nausea [Unknown]
  - Headache [Unknown]
  - Dizziness [Unknown]
  - Vomiting [Unknown]
  - Constipation [Unknown]
  - Hyperglycaemia [Unknown]
  - Hypoglycaemia [Unknown]
  - Bradycardia [Unknown]
  - Abdominal pain [Unknown]
